FAERS Safety Report 5398090-5 (Version None)
Quarter: 2007Q3

REPORT INFORMATION
  Report Type: 
  Country: None (occurrence: None)
  Receive Date: 20070726
  Receipt Date: 20070712
  Transmission Date: 20080115
  Serious: Yes (Hospitalization, Other)
  Sender: FDA-Public Use
  Company Number: US-PFIZER INC-2007026273

PATIENT
  Sex: Male
  Weight: 81.6 kg

DRUGS (3)
  1. BEXTRA [Suspect]
     Indication: PAIN
     Route: 048
  2. BEXTRA [Suspect]
     Indication: INFLAMMATION
  3. BEXTRA [Suspect]
     Indication: ARTHRITIS

REACTIONS (3)
  - ANXIETY [None]
  - CEREBROVASCULAR ACCIDENT [None]
  - INSOMNIA [None]
